FAERS Safety Report 17497076 (Version 1)
Quarter: 2020Q1

REPORT INFORMATION
  Report Type: Spontaneous
  Country: CN (occurrence: CN)
  Receive Date: 20200304
  Receipt Date: 20200304
  Transmission Date: 20200409
  Serious: Yes (Hospitalization)
  Sender: FDA-Public Use
  Company Number: CN-UCBSA-2020008248

PATIENT
  Age: 64 Year
  Sex: Male
  Weight: 70 kg

DRUGS (5)
  1. KEPPRA [Suspect]
     Active Substance: LEVETIRACETAM
     Indication: EPILEPSY
     Dosage: 0.5 GRAM, 2X/DAY (BID)
     Route: 048
     Dates: start: 20191108, end: 20191122
  2. TRILEPTAL [Concomitant]
     Active Substance: OXCARBAZEPINE
     Indication: EPILEPSY
     Dosage: 300 MILLIGRAM, 2X/DAY (BID)
     Dates: start: 20191108, end: 20191122
  3. TAZOBACTAM SODIUM [Concomitant]
     Active Substance: TAZOBACTAM SODIUM
     Indication: PRODUCT USED FOR UNKNOWN INDICATION
     Dosage: UNK
  4. DOXOFYLLINE [Concomitant]
     Active Substance: DOXOFYLLINE
     Indication: ASTHMA
     Dosage: 0.2 GRAM, 2X/DAY (BID)
     Route: 041
     Dates: start: 20191107, end: 20191125
  5. PIPERACILLIN AND TAZOBACTAM [Concomitant]
     Active Substance: PIPERACILLIN SODIUM\TAZOBACTAM SODIUM
     Indication: INFECTION
     Dosage: 4.5 GRAM, 2X/DAY (BID)
     Route: 041
     Dates: start: 20191031, end: 20191122

REACTIONS (1)
  - White blood cell count decreased [Recovered/Resolved]

NARRATIVE: CASE EVENT DATE: 20191122
